FAERS Safety Report 10029804 (Version 2)
Quarter: 2014Q2

REPORT INFORMATION
  Report Type: Spontaneous
  Country: US (occurrence: None)
  Receive Date: 20140320
  Receipt Date: 20140527
  Transmission Date: 20141212
  Serious: Yes (Death)
  Sender: FDA-Public Use
  Company Number: INS201403-000009

PATIENT
  Age: 29 Year
  Sex: Female
  Weight: 42.18 kg

DRUGS (11)
  1. SUBSYS [Suspect]
     Indication: BREAKTHROUGH PAIN
  2. FENTANYL (FENTANYL) (FENTANYL) [Concomitant]
  3. SULFAMETHOXAZOLE TRIMETHROPRIM (SULFAMETHOXAZOLE-TRIMETHOPRIM) [Concomitant]
  4. DEXAMETHASONE (DEXAMETHASONE) (DEXAMETHASONE) [Concomitant]
  5. LORAZEPAM (LORAZEPAM) (LORAZEPAM) [Concomitant]
  6. PANTOPRAZOLE SODIUM (PANTOPRAZOLE SODIUM) (PANTOPRAZOLE SODIUM) [Concomitant]
  7. CARBAMAZEPINE (CARBAMAZEPINE) (CARBAMAZEPINE) [Concomitant]
  8. TEMOZOLOMIDE (TEMOZOLOMIDE) (TEMOZOLOMIDE) [Concomitant]
  9. LEVETIRACETAM (LEVETIRACETAM) (LEVETIRACETAM) [Concomitant]
  10. OXYCODONE (OXYCODONE) (OXYCODONE) [Concomitant]
  11. ONDANSETRON (ONDANSETRON) (ONDANSETRON) [Concomitant]

REACTIONS (1)
  - Death [None]
